FAERS Safety Report 4501949-1 (Version None)
Quarter: 2004Q4

REPORT INFORMATION
  Report Type: 
  Country: None (occurrence: None)
  Receive Date: 20041116
  Receipt Date: 20041025
  Transmission Date: 20050328
  Serious: Yes (Death, Hospitalization)
  Sender: FDA-Public Use
  Company Number: ESWYE150827OCT04

PATIENT
  Sex: Female
  Weight: 62 kg

DRUGS (6)
  1. ENBREL [Suspect]
     Indication: RHEUMATOID ARTHRITIS
     Route: 058
     Dates: start: 20040624, end: 20041023
  2. METHOTREXATE [Interacting]
     Indication: RHEUMATOID ARTHRITIS
     Route: 048
     Dates: start: 20040624, end: 20041023
  3. OMEPRAZOLE [Concomitant]
     Indication: PROPHYLAXIS AGAINST GASTROINTESTINAL ULCER
     Route: 048
     Dates: start: 19970313
  4. PENTOSAN POLYSULFATE [Concomitant]
     Indication: VENOUS INSUFFICIENCY
     Route: 061
     Dates: start: 20040310
  5. ACETAMINOPHEN [Concomitant]
     Indication: PAIN
     Route: 048
     Dates: start: 20040913
  6. FOLIC ACID [Concomitant]
     Indication: DRUG TOXICITY
     Route: 048
     Dates: start: 20040624

REACTIONS (3)
  - DRUG INTERACTION [None]
  - INTERSTITIAL LUNG DISEASE [None]
  - PCO2 DECREASED [None]
